FAERS Safety Report 6537675-7 (Version None)
Quarter: 2010Q1

REPORT INFORMATION
  Report Type: 
  Country: None (occurrence: None)
  Receive Date: 20100114
  Receipt Date: 20100108
  Transmission Date: 20100710
  Serious: Yes (Disabling)
  Sender: FDA-Public Use
  Company Number: FR-BAXTER-2010BH000657

PATIENT
  Age: 51 Year
  Sex: Male

DRUGS (21)
  1. HOLOXAN BAXTER [Suspect]
     Indication: DIFFUSE LARGE B-CELL LYMPHOMA STAGE II
     Route: 042
     Dates: start: 20091002
  2. HOLOXAN BAXTER [Suspect]
     Route: 042
     Dates: start: 20090819, end: 20090819
  3. HOLOXAN BAXTER [Suspect]
     Route: 042
     Dates: start: 20090904, end: 20090904
  4. HOLOXAN BAXTER [Suspect]
     Route: 042
     Dates: start: 20090918, end: 20090918
  5. ETOPOSIDE [Suspect]
     Indication: DIFFUSE LARGE B-CELL LYMPHOMA STAGE II
     Route: 042
     Dates: start: 20091002
  6. ETOPOSIDE [Suspect]
     Route: 042
     Dates: start: 20090819, end: 20090819
  7. ETOPOSIDE [Suspect]
     Route: 042
     Dates: start: 20090904, end: 20090904
  8. ETOPOSIDE [Suspect]
     Route: 042
     Dates: start: 20090918, end: 20090918
  9. METHOTREXATE GENERIC [Suspect]
     Indication: DIFFUSE LARGE B-CELL LYMPHOMA STAGE II
     Route: 038
     Dates: start: 20091002
  10. METHOTREXATE GENERIC [Suspect]
     Route: 042
     Dates: start: 20090717, end: 20090717
  11. METHOTREXATE GENERIC [Suspect]
     Route: 042
     Dates: start: 20090730, end: 20090730
  12. MABTHERA [Suspect]
     Indication: DIFFUSE LARGE B-CELL LYMPHOMA STAGE II
     Route: 065
     Dates: start: 20091002
  13. MABTHERA [Suspect]
     Route: 065
     Dates: start: 20090819, end: 20090819
  14. MABTHERA [Suspect]
     Route: 065
     Dates: start: 20090520, end: 20090524
  15. UROMITEXAN BAXTER [Concomitant]
     Indication: CHEMOTHERAPY
     Route: 065
     Dates: start: 20090819, end: 20090819
  16. DOXORUBICIN HCL [Concomitant]
     Indication: CHEMOTHERAPY
     Route: 065
     Dates: start: 20090520, end: 20090524
  17. VINDESINE [Concomitant]
     Indication: CHEMOTHERAPY
     Route: 065
     Dates: start: 20090520, end: 20090524
  18. BLEOMYCIN SULFATE [Concomitant]
     Indication: CHEMOTHERAPY
     Route: 065
     Dates: start: 20090520, end: 20090524
  19. METHYLPREDNISOLONE 4MG TAB [Concomitant]
     Indication: CHEMOTHERAPY
     Route: 065
     Dates: start: 20090520, end: 20090524
  20. CYTARABINE [Concomitant]
     Indication: CHEMOTHERAPY
     Route: 038
     Dates: start: 20090520, end: 20090520
  21. ENDOXAN [Concomitant]
     Indication: CHEMOTHERAPY
     Route: 065
     Dates: start: 20090520, end: 20090520

REACTIONS (1)
  - PARAESTHESIA [None]
